FAERS Safety Report 7269390-9 (Version None)
Quarter: 2011Q1

REPORT INFORMATION
  Report Type: 
  Country: None (occurrence: None)
  Receive Date: 20110202
  Receipt Date: 20110125
  Transmission Date: 20110831
  Serious: Yes (Hospitalization)
  Sender: FDA-Public Use
  Company Number: US-BRISTOL-MYERS SQUIBB COMPANY-15511736

PATIENT
  Age: 32 Year
  Sex: Female

DRUGS (3)
  1. LAMOTRIGINE [Suspect]
  2. ABILIFY [Suspect]
     Dates: start: 20101101
  3. TAXOL [Suspect]

REACTIONS (1)
  - SUICIDE ATTEMPT [None]
